FAERS Safety Report 9199581 (Version 1)
Quarter: 2013Q1

REPORT INFORMATION
  Report Type: Spontaneous
  Country: US (occurrence: US)
  Receive Date: 20130329
  Receipt Date: 20130329
  Transmission Date: 20140127
  Serious: No
  Sender: FDA-Public Use
  Company Number: US-GLAXOSMITHKLINE-A1007408A

PATIENT
  Sex: Female

DRUGS (13)
  1. BENLYSTA [Suspect]
     Indication: SYSTEMIC LUPUS ERYTHEMATOSUS
     Dosage: 10MGK VARIABLE DOSE
     Route: 042
     Dates: start: 201108
  2. PREDNISONE [Concomitant]
  3. COUMADIN [Concomitant]
  4. EFFEXOR [Concomitant]
  5. AMITRIPTYLINE [Concomitant]
  6. PLAQUENIL [Concomitant]
  7. LYRICA [Concomitant]
  8. NAPROXEN [Concomitant]
  9. ZOCOR [Concomitant]
  10. ALTACE [Concomitant]
  11. AMARYL [Concomitant]
  12. FLEXERIL [Concomitant]
  13. IMITREX [Concomitant]

REACTIONS (1)
  - Drug ineffective [Unknown]
